FAERS Safety Report 7805161-X (Version None)
Quarter: 2011Q4

REPORT INFORMATION
  Report Type: 
  Country: None (occurrence: None)
  Receive Date: 20111010
  Receipt Date: 20110930
  Transmission Date: 20120403
  Serious: Yes (Hospitalization)
  Sender: FDA-Public Use
  Company Number: US-BAYER-201040504NA

PATIENT
  Age: 34 Year
  Sex: Female
  Weight: 82.993 kg

DRUGS (3)
  1. YASMIN [Suspect]
     Indication: ORAL CONTRACEPTION
     Dosage: UNK
     Route: 048
     Dates: start: 20030101, end: 20070927
  2. AZITHROMYCIN [Concomitant]
     Dosage: UNK UNK, QD
     Route: 048
  3. PRENATAL [Concomitant]
     Dosage: UNK UNK, QD
     Route: 048

REACTIONS (4)
  - BACK PAIN [None]
  - COUGH [None]
  - PAINFUL RESPIRATION [None]
  - PULMONARY EMBOLISM [None]
